FAERS Safety Report 7914268-8 (Version None)
Quarter: 2011Q4

REPORT INFORMATION
  Report Type: 
  Country: None (occurrence: None)
  Receive Date: 20111110
  Receipt Date: 20111102
  Transmission Date: 20120403
  Serious: Yes (Hospitalization, Other)
  Sender: FDA-Public Use
  Company Number: 2011SP019417

PATIENT
  Age: 35 Year
  Sex: Female
  Weight: 83.9154 kg

DRUGS (2)
  1. NUVARING [Suspect]
     Indication: CONTRACEPTION
     Dates: start: 20060728, end: 20090501
  2. SYNTHROID [Concomitant]

REACTIONS (18)
  - BLOOD THYROID STIMULATING HORMONE INCREASED [None]
  - PALPITATIONS [None]
  - SINUS CONGESTION [None]
  - RASH [None]
  - ABDOMINAL PAIN UPPER [None]
  - EXTRASYSTOLES [None]
  - PULMONARY EMBOLISM [None]
  - CONSTIPATION [None]
  - SINUS HEADACHE [None]
  - ABDOMINAL DISTENSION [None]
  - ATELECTASIS [None]
  - CARDIAC FLUTTER [None]
  - DIABETES MELLITUS [None]
  - HYPOTHYROIDISM [None]
  - ACUTE SINUSITIS [None]
  - TINEA INFECTION [None]
  - GASTROOESOPHAGEAL REFLUX DISEASE [None]
  - WEIGHT INCREASED [None]
